FAERS Safety Report 23595382 (Version 1)
Quarter: 2024Q1

REPORT INFORMATION
  Report Type: Spontaneous
  Country: CA (occurrence: None)
  Receive Date: 20240305
  Receipt Date: 20240305
  Transmission Date: 20240410
  Serious: Yes (Other)
  Sender: FDA-Public Use
  Company Number: CA-PFIZER INC-202400047717

PATIENT
  Age: 57 Year
  Sex: Male

DRUGS (1)
  1. METHOTREXATE [Suspect]
     Active Substance: METHOTREXATE
     Indication: Ankylosing spondylitis

REACTIONS (6)
  - Spinal fracture [Unknown]
  - Fall [Unknown]
  - Product use in unapproved indication [Unknown]
  - Ankylosing spondylitis [Not Recovered/Not Resolved]
  - Epigastric discomfort [Unknown]
  - Iritis [Unknown]

NARRATIVE: CASE EVENT DATE: 20220101
